FAERS Safety Report 4716084-7 (Version None)
Quarter: 2005Q3

REPORT INFORMATION
  Report Type: 
  Country: None (occurrence: None)
  Receive Date: 20050718
  Receipt Date: 20050705
  Transmission Date: 20060218
  Serious: Yes (Life-Threatening, Hospitalization)
  Sender: FDA-Public Use
  Company Number: DE-JNJFOC-20050701030

PATIENT
  Sex: Female

DRUGS (3)
  1. RISPERDAL [Suspect]
     Dosage: 1/2 DOSE IN MORNING AND EVENING (1/2 - 0- 1/2)
     Route: 048
  2. METOPROLOL SUCCINATE [Concomitant]
     Route: 048
  3. THIAMAZOL [Concomitant]
     Indication: HYPERTHYROIDISM
     Route: 048

REACTIONS (4)
  - COMA [None]
  - HYPERVOLAEMIA [None]
  - HYPONATRAEMIA [None]
  - INAPPROPRIATE ANTIDIURETIC HORMONE SECRETION [None]
